FAERS Safety Report 4322747-8 (Version None)
Quarter: 2004Q1

REPORT INFORMATION
  Report Type: 
  Country: None (occurrence: None)
  Receive Date: 20040324
  Receipt Date: 20040227
  Transmission Date: 20041129
  Serious: Yes (Hospitalization)
  Sender: FDA-Public Use
  Company Number: JP-GLAXOSMITHKLINE-B0325120A

PATIENT
  Age: 50 Year
  Sex: Male

DRUGS (6)
  1. FLUTIDE DISKUS [Suspect]
     Indication: ASTHMA
     Dosage: 200MCG TWICE PER DAY
     Route: 055
     Dates: start: 20030811, end: 20040227
  2. THEOLONG [Suspect]
     Route: 048
  3. SEREVENT [Suspect]
     Route: 055
  4. HOKUNALIN [Concomitant]
     Route: 065
  5. MEDICON [Concomitant]
     Route: 048
  6. MUCODYNE [Concomitant]
     Route: 048

REACTIONS (1)
  - EOSINOPHILIC PNEUMONIA [None]
